FAERS Safety Report 8992149 (Version 2)
Quarter: 2014Q2

REPORT INFORMATION
  Report Type: Report from Study
  Country: CA (occurrence: CA)
  Receive Date: 20121231
  Receipt Date: 20140415
  Transmission Date: 20141212
  Serious: Yes (Hospitalization, Other)
  Sender: FDA-Public Use
  Company Number: CA-ROCHE-1170887

PATIENT
  Age: 39 Year
  Sex: Male
  Weight: 113.52 kg

DRUGS (7)
  1. OMALIZUMAB [Suspect]
     Indication: ASTHMA
     Dosage: 300 MG, 1/MONTH
     Route: 058
     Dates: start: 20070114
  2. OMALIZUMAB [Suspect]
     Dosage: 300 MG, 1/MONTH
     Route: 058
     Dates: start: 20090619
  3. OMALIZUMAB [Suspect]
     Dosage: UNK
     Route: 058
     Dates: start: 20070402
  4. OMALIZUMAB [Suspect]
     Dosage: 300 MG, Q2W
     Route: 058
     Dates: start: 20091106
  5. OMALIZUMAB [Suspect]
     Dosage: 300 MG, 1/MONTH
     Route: 058
     Dates: start: 20100326
  6. CLOZARIL [Concomitant]
     Indication: PRODUCT USED FOR UNKNOWN INDICATION
     Dosage: 300 MG, 1/MONTH
     Route: 065
     Dates: start: 20090216
  7. ACETAMINOPHEN [Concomitant]
     Indication: PRODUCT USED FOR UNKNOWN INDICATION

REACTIONS (28)
  - Hypersensitivity [Recovering/Resolving]
  - Rhinitis allergic [Unknown]
  - Blindness transient [Unknown]
  - Pyrexia [Unknown]
  - Toxicity to various agents [Unknown]
  - Sinusitis [Unknown]
  - Fatigue [Unknown]
  - Fibromyalgia [Recovering/Resolving]
  - Fungal infection [Unknown]
  - Cough [Unknown]
  - Increased bronchial secretion [Unknown]
  - Dysphonia [Unknown]
  - Seasonal allergy [Recovering/Resolving]
  - Productive cough [Unknown]
  - Increased upper airway secretion [Unknown]
  - Neuralgia [Unknown]
  - Hypoaesthesia [Unknown]
  - Psychomotor skills impaired [Unknown]
  - Muscle spasms [Unknown]
  - Back pain [Unknown]
  - Cyanosis [Unknown]
  - Hypoaesthesia oral [Unknown]
  - Eye swelling [Unknown]
  - Eye discharge [Unknown]
  - Oedema [Unknown]
  - Ear infection [Unknown]
  - Mobility decreased [Unknown]
  - Asthma [Unknown]
